FAERS Safety Report 4646769-2 (Version None)
Quarter: 2005Q2

REPORT INFORMATION
  Report Type: 
  Country: None (occurrence: None)
  Receive Date: 20050331
  Receipt Date: 20041209
  Transmission Date: 20051028
  Serious: No
  Sender: FDA-Public Use
  Company Number: 04P-163-0282819-00

PATIENT
  Age: 56 Year
  Sex: Female
  Weight: 74.3899 kg

DRUGS (10)
  1. HUMIRA [Suspect]
     Indication: RHEUMATOID ARTHRITIS
     Dosage: 40 MG, SUBCUTANEOUS
     Route: 058
     Dates: start: 20041123, end: 20041123
  2. METHOTREXATE [Concomitant]
  3. CELECOXIB [Concomitant]
  4. LEFLUNOMIDE [Concomitant]
  5. FOLIC ACID [Concomitant]
  6. CALCIUM GLUCONATE [Concomitant]
  7. ASPIRIN [Concomitant]
  8. METOPROLOL SUCCINATE [Concomitant]
  9. ATORVASTATIN CALCIUM [Concomitant]
  10. LEXAPRO [Concomitant]

REACTIONS (5)
  - INJECTION SITE ERYTHEMA [None]
  - INJECTION SITE PRURITUS [None]
  - INJECTION SITE REACTION [None]
  - INJECTION SITE WARMTH [None]
  - RASH [None]
